FAERS Safety Report 7360151-9 (Version None)
Quarter: 2011Q1

REPORT INFORMATION
  Report Type: 
  Country: None (occurrence: None)
  Receive Date: 20110318
  Receipt Date: 20110309
  Transmission Date: 20110831
  Serious: Yes (Hospitalization)
  Sender: FDA-Public Use
  Company Number: US-BIOGENIDEC-2011BI008957

PATIENT
  Age: 50 Year
  Sex: Male

DRUGS (2)
  1. TYSABRI [Suspect]
     Indication: MULTIPLE SCLEROSIS
     Route: 042
     Dates: start: 20091008
  2. AMPYRA [Concomitant]
     Indication: GAIT DISTURBANCE

REACTIONS (10)
  - NYSTAGMUS [None]
  - GAIT DISTURBANCE [None]
  - CONSTIPATION [None]
  - INSOMNIA [None]
  - BACK PAIN [None]
  - BURNING SENSATION [None]
  - STRESS [None]
  - MULTIPLE SCLEROSIS RELAPSE [None]
  - DEPRESSION [None]
  - GASTROENTERITIS VIRAL [None]
